FAERS Safety Report 14903845 (Version 1)
Quarter: 2018Q2

REPORT INFORMATION
  Report Type: Spontaneous
  Country: LB (occurrence: LB)
  Receive Date: 20180516
  Receipt Date: 20180516
  Transmission Date: 20180711
  Serious: Yes (Other)
  Sender: FDA-Public Use
  Company Number: LB-009507513-1805LBN004258

PATIENT
  Age: 40 Year
  Sex: Female

DRUGS (1)
  1. PEMBROLIZUMAB. [Suspect]
     Active Substance: PEMBROLIZUMAB
     Indication: OVARIAN CANCER METASTATIC
     Dosage: 200 MG, Q3W
     Dates: start: 201711

REACTIONS (4)
  - Drug effective for unapproved indication [Unknown]
  - Product use in unapproved indication [Unknown]
  - Immune-mediated adverse reaction [Recovering/Resolving]
  - Hyperparathyroidism [Recovering/Resolving]

NARRATIVE: CASE EVENT DATE: 201712
